FAERS Safety Report 8193714-1 (Version None)
Quarter: 2012Q1

REPORT INFORMATION
  Report Type: 
  Country: None (occurrence: None)
  Receive Date: 20120308
  Receipt Date: 20120301
  Transmission Date: 20120608
  Serious: Yes (Hospitalization)
  Sender: FDA-Public Use
  Company Number: US-AMGEN-USASP2011045013

PATIENT
  Age: 79 Year
  Sex: Female

DRUGS (1)
  1. ENBREL [Suspect]
     Indication: RHEUMATOID ARTHRITIS
     Dosage: 50 MG, QWK
     Dates: start: 20090816, end: 20111218

REACTIONS (8)
  - RHEUMATOID ARTHRITIS [None]
  - COLON CANCER METASTATIC [None]
  - FALLOPIAN TUBE ABSCESS [None]
  - ABSCESS INTESTINAL [None]
  - JOINT SWELLING [None]
  - OVARIAN ABSCESS [None]
  - SHOULDER ARTHROPLASTY [None]
  - SURGERY [None]
